FAERS Safety Report 5061114-9 (Version None)
Quarter: 2006Q3

REPORT INFORMATION
  Report Type: 
  Country: None (occurrence: None)
  Receive Date: 20060720
  Receipt Date: 20060711
  Transmission Date: 20061208
  Serious: Yes (Death)
  Sender: FDA-Public Use
  Company Number: 054

PATIENT
  Sex: Female

DRUGS (6)
  1. FAZACLO ODT [Suspect]
     Indication: SCHIZOAFFECTIVE DISORDER
     Dosage: 200 MG PO DAILY
     Route: 048
     Dates: start: 20060505, end: 20060525
  2. ATIVAN [Concomitant]
  3. MORPHINE [Concomitant]
  4. DULCOLAX SUPP [Concomitant]
  5. LACTULOSE [Concomitant]
  6. SCOPOLAMINE PATCH [Concomitant]

REACTIONS (5)
  - GENERAL PHYSICAL HEALTH DETERIORATION [None]
  - LUNG CANCER METASTATIC [None]
  - METASTASES TO CENTRAL NERVOUS SYSTEM [None]
  - METASTASES TO LIVER [None]
  - METASTASES TO SPLEEN [None]
